FAERS Safety Report 5024361-8 (Version None)
Quarter: 2006Q2

REPORT INFORMATION
  Report Type: 
  Country: None (occurrence: None)
  Receive Date: 20060613
  Receipt Date: 20060404
  Transmission Date: 20061013
  Serious: Yes (Other)
  Sender: FDA-Public Use
  Company Number: US-GILEAD-2006-0009415

PATIENT
  Age: 32 Year
  Sex: Female

DRUGS (7)
  1. TRUVADA [Suspect]
     Indication: HIV INFECTION
     Route: 048
  2. FUZEON [Suspect]
     Indication: HIV INFECTION
     Route: 058
  3. TIPRANAVIR [Suspect]
     Indication: HIV INFECTION
     Route: 048
  4. NORVIR [Suspect]
     Indication: HIV INFECTION
     Route: 048
  5. PROCRIT [Concomitant]
     Indication: ANAEMIA
  6. AZITHROMYCIN [Concomitant]
  7. MEPRON [Concomitant]

REACTIONS (3)
  - ABORTION SPONTANEOUS [None]
  - DRUG EXPOSURE DURING PREGNANCY [None]
  - PREGNANCY [None]
